FAERS Safety Report 26066303 (Version 2)
Quarter: 2025Q4

REPORT INFORMATION
  Report Type: Report from Study
  Country: CN (occurrence: CN)
  Receive Date: 20251119
  Receipt Date: 20251215
  Transmission Date: 20260118
  Serious: Yes (Other)
  Sender: PFIZER
  Company Number: CN-PFIZER INC-PV202500121153

PATIENT
  Age: 38 Year
  Sex: Male

DRUGS (2)
  1. XYNTHA [Suspect]
     Active Substance: MOROCTOCOG ALFA
     Indication: Factor VIII deficiency
     Dosage: 2000 IU, 2X/DAY (EVERY 12 HOURS)
     Route: 042
  2. XYNTHA [Suspect]
     Active Substance: MOROCTOCOG ALFA
     Dosage: 2000 IU, 2X/DAY (Q12H)
     Route: 042

REACTIONS (6)
  - Procedural haemorrhage [Unknown]
  - Knee arthroplasty [Unknown]
  - Loose body removal [Unknown]
  - Arthrolysis [Unknown]
  - Bone graft [Unknown]
  - Arthralgia [Unknown]

NARRATIVE: CASE EVENT DATE: 20251021
